FAERS Safety Report 4617537-2 (Version None)
Quarter: 2005Q1

REPORT INFORMATION
  Report Type: 
  Country: None (occurrence: None)
  Receive Date: 20050314
  Receipt Date: 20050303
  Transmission Date: 20050727
  Serious: Yes (Other)
  Sender: FDA-Public Use
  Company Number: 200410459BBE

PATIENT
  Sex: Male

DRUGS (10)
  1. HYPRHO-D [Suspect]
  2. NJECTABLE GLOBULIN (JOHNSON AND JOHNSON)  (IMMUNOGLOBULIN HUMAN NORMAL [Suspect]
  3. NJECTABLE GLOBULIN (ORTHOCLINICAL DIAGNOSTICS)  (IMMUNOGLOBULIN HUMAN [Suspect]
  4. NJECTABLE GLOBULIN (AVENTIS PASTEUR)  (IMMUNOGLOBULIN HUMAN NORMAL) [Suspect]
  5. NJECTABLE GLOBULIN (DOW AGRO SCIENCES)  (IMMUNOGLOBULIN HUMAN NORMAL) [Suspect]
  6. NJECTABLE GLOBULIN (DOW CHEMICAL SCIENCES) (IMMUNOGLOBULIN HUMAN NORMA [Suspect]
  7. NJECTABLE GLOBULIN (ELI LILLY)  (IMMUNOGLOBULIN HUMAN NORMAL) [Suspect]
  8. NJECTABLE GLOBULIN (GLAXOSMITH KLINE) (IMMUNOGLOBULIN HUMAN NORMAL) [Suspect]
  9. NJECTABLE GLOBULIN (MERCK)  (IMMUNOGLOBULIN HUMAN NORMAL) [Suspect]
  10. NJECTABLE GLOBULIN (WYETH)  (IMMUNOGLOBULIN HUMAN NORMAL) [Suspect]

REACTIONS (3)
  - DRUG EXPOSURE DURING PREGNANCY [None]
  - METAL POISONING [None]
  - NEUROTOXICITY [None]
